FAERS Safety Report 18038395 (Version 2)
Quarter: 2020Q3

REPORT INFORMATION
  Report Type: Report from Study
  Country: None (occurrence: US)
  Receive Date: 20200717
  Receipt Date: 20200730
  Transmission Date: 20201103
  Serious: Yes (Other)
  Sender: FDA-Public Use
  Company Number: US-ABBVIE-19K-163-3179681-00

PATIENT
  Sex: Female

DRUGS (1)
  1. HUMIRA [Suspect]
     Active Substance: ADALIMUMAB
     Indication: UVEITIS
     Dosage: CITRATE FREE
     Route: 058

REACTIONS (14)
  - Blindness [Recovering/Resolving]
  - Eye discharge [Unknown]
  - White blood cell count increased [Not Recovered/Not Resolved]
  - Coronavirus infection [Not Recovered/Not Resolved]
  - Eye inflammation [Unknown]
  - Muscle spasms [Not Recovered/Not Resolved]
  - Visual acuity reduced [Not Recovered/Not Resolved]
  - Cerebral disorder [Unknown]
  - Multiple allergies [Unknown]
  - Migraine [Unknown]
  - Electrocution [Unknown]
  - Gastric disorder [Unknown]
  - Blood test abnormal [Unknown]
  - Thermal burns of eye [Unknown]

NARRATIVE: CASE EVENT DATE: 2001
